FAERS Safety Report 23568298 (Version 1)
Quarter: 2024Q1

REPORT INFORMATION
  Report Type: Spontaneous
  Country: US (occurrence: US)
  Receive Date: 20240227
  Receipt Date: 20240227
  Transmission Date: 20240410
  Serious: No
  Sender: FDA-Public Use
  Company Number: US-PRINSTON PHARMACEUTICAL INC.-2024PRN00052

PATIENT
  Age: 5 Decade
  Sex: Male
  Weight: 97.506 kg

DRUGS (1)
  1. TADALAFIL [Suspect]
     Active Substance: TADALAFIL
     Indication: Erectile dysfunction
     Dosage: UNK
     Dates: start: 202401

REACTIONS (6)
  - Pruritus genital [Not Recovered/Not Resolved]
  - Genital erythema [Not Recovered/Not Resolved]
  - Genital infection [Not Recovered/Not Resolved]
  - Genital odour [Not Recovered/Not Resolved]
  - Smegma accumulation [Not Recovered/Not Resolved]
  - Genital discomfort [Not Recovered/Not Resolved]

NARRATIVE: CASE EVENT DATE: 20240101
